FAERS Safety Report 23605528 (Version 1)
Quarter: 2024Q1

REPORT INFORMATION
  Report Type: Spontaneous
  Country: US (occurrence: None)
  Receive Date: 20240306
  Receipt Date: 20240306
  Transmission Date: 20240409
  Serious: Yes (Hospitalization)
  Sender: FDA-Public Use
  Company Number: None

PATIENT
  Age: 67 Year
  Sex: Female

DRUGS (5)
  1. VERZENIO [Suspect]
     Active Substance: ABEMACICLIB
     Indication: Breast cancer female
     Dosage: 100MG TWICE DAILY ORAL?
     Route: 048
     Dates: start: 202207
  2. ALBUTEROL [Concomitant]
     Active Substance: ALBUTEROL
  3. PANTOPRAZOLE [Concomitant]
     Active Substance: PANTOPRAZOLE
  4. ELIQUIS [Concomitant]
     Active Substance: APIXABAN
  5. BENZONATATE [Concomitant]
     Active Substance: BENZONATATE

REACTIONS (2)
  - Pulmonary thrombosis [None]
  - Arterial thrombosis [None]

NARRATIVE: CASE EVENT DATE: 20240201
